FAERS Safety Report 7434363-X (Version None)
Quarter: 2011Q2

REPORT INFORMATION
  Report Type: 
  Country: None (occurrence: None)
  Receive Date: 20110425
  Receipt Date: 20110413
  Transmission Date: 20111010
  Serious: Yes (Hospitalization, Other)
  Sender: FDA-Public Use
  Company Number: FR-JNJFOC-20110406959

PATIENT
  Sex: Male
  Weight: 2.81 kg

DRUGS (2)
  1. TPN [Concomitant]
     Indication: DRUG EXPOSURE DURING PREGNANCY
     Route: 065
  2. ORTHO EVRA [Suspect]
     Indication: DRUG EXPOSURE DURING PREGNANCY
     Route: 064

REACTIONS (3)
  - PNEUMOTHORAX [None]
  - INFECTION [None]
  - PREMATURE BABY [None]
